FAERS Safety Report 4620493-4 (Version None)
Quarter: 2005Q1

REPORT INFORMATION
  Report Type: 
  Country: None (occurrence: None)
  Receive Date: 20050324
  Receipt Date: 20050316
  Transmission Date: 20050727
  Serious: Yes (Hospitalization)
  Sender: FDA-Public Use
  Company Number: 200403207

PATIENT
  Age: 63 Year
  Sex: Female

DRUGS (5)
  1. BOTOX COSMETIC [Suspect]
     Indication: SKIN WRINKLING
     Dosage: 37.5 UNITS ONCE IM
     Route: 030
     Dates: start: 20040322, end: 20040322
  2. BOTOX COSMETIC [Suspect]
     Indication: SKIN WRINKLING
     Dates: start: 20040324, end: 20040324
  3. SUDAFED 12 HOUR [Concomitant]
  4. ASPIRIN [Concomitant]
  5. DYAZIDE [Concomitant]

REACTIONS (11)
  - ANGER [None]
  - DRUG INEFFECTIVE [None]
  - ERYTHEMA OF EYELID [None]
  - EYE SWELLING [None]
  - EYELID DISORDER [None]
  - EYELID OEDEMA [None]
  - HYPERSENSITIVITY [None]
  - OCULAR HYPERAEMIA [None]
  - PAROTID ABSCESS [None]
  - SKIN DISORDER [None]
  - SWELLING FACE [None]
